FAERS Safety Report 19798594 (Version 1)
Quarter: 2021Q3

REPORT INFORMATION
  Report Type: Spontaneous
  Country: US (occurrence: US)
  Receive Date: 20210907
  Receipt Date: 20210907
  Transmission Date: 20211014
  Serious: No
  Sender: FDA-Public Use
  Company Number: US-RECORDATI RARE DISEASES INC.-2020004121

PATIENT

DRUGS (1)
  1. COSMEGEN [Suspect]
     Active Substance: DACTINOMYCIN
     Indication: PRODUCT USED FOR UNKNOWN INDICATION
     Dosage: 2 MILLIGRAM, 1 IN 2 WEEKS
     Route: 042

REACTIONS (3)
  - Product dose omission issue [Unknown]
  - Therapy non-responder [Unknown]
  - Illness [Unknown]
